FAERS Safety Report 5663070-9 (Version None)
Quarter: 2008Q1

REPORT INFORMATION
  Report Type: 
  Country: None (occurrence: None)
  Receive Date: 20080313
  Receipt Date: 20080305
  Transmission Date: 20080703
  Serious: Yes (Hospitalization)
  Sender: FDA-Public Use
  Company Number: US-JNJFOC-20080301698

PATIENT
  Age: 16 Year
  Sex: Female
  Weight: 63.5 kg

DRUGS (3)
  1. TOPAMAX [Suspect]
     Route: 048
  2. TOPAMAX [Suspect]
     Indication: MIGRAINE PROPHYLAXIS
     Route: 048
  3. METHSCOPOLAMINE BROMIDE [Concomitant]
     Indication: ABDOMINAL PAIN UPPER

REACTIONS (2)
  - DISORIENTATION [None]
  - URTICARIA [None]
